FAERS Safety Report 18101831 (Version 1)
Quarter: 2020Q3

REPORT INFORMATION
  Report Type: Spontaneous
  Country: US (occurrence: US)
  Receive Date: 20200802
  Receipt Date: 20200802
  Transmission Date: 20201103
  Serious: Yes (Other)
  Sender: FDA-Public Use
  Company Number: US-BEH-2020120417

PATIENT
  Age: 17 Year
  Sex: Female

DRUGS (3)
  1. HUMAN IMMUNOGLOBULIN (INN) [Suspect]
     Active Substance: HUMAN IMMUNOGLOBULIN G
     Indication: TOXIC EPIDERMAL NECROLYSIS
     Dosage: 1 GRAM PER KILOGRAM, QD
     Route: 042
  2. DIVALPROEX [Concomitant]
     Active Substance: DIVALPROEX SODIUM
     Route: 065
  3. PHENYTOIN. [Concomitant]
     Active Substance: PHENYTOIN
     Route: 065

REACTIONS (4)
  - No adverse event [Unknown]
  - Exposure during pregnancy [Unknown]
  - Stillbirth [Not Recovered/Not Resolved]
  - Product use in unapproved indication [Unknown]
